FAERS Safety Report 9016102 (Version 2)
Quarter: 2013Q2

REPORT INFORMATION
  Report Type: Spontaneous
  Country: NO (occurrence: NO)
  Receive Date: 20130116
  Receipt Date: 20130501
  Transmission Date: 20140414
  Serious: Yes (Other)
  Sender: FDA-Public Use
  Company Number: NO-PFIZER INC-2013015498

PATIENT
  Age: 33 Year
  Sex: Female

DRUGS (5)
  1. DOSTINEX [Suspect]
     Indication: HYPERPROLACTINAEMIA
     Dosage: 0.25 MG, 2X/DAY
     Route: 048
     Dates: start: 20120914
  2. TACROLIMUS [Interacting]
     Indication: RENAL TRANSPLANT
     Dosage: 2.5 MG, 2X/DAY
     Route: 048
     Dates: start: 2009, end: 20121003
  3. TACROLIMUS [Interacting]
     Dosage: 2 MG, 2X/DAY
     Route: 048
     Dates: start: 20121003
  4. PREDNISONE [Concomitant]
     Dosage: 5 MG, 1X/DAY
     Route: 048
  5. ALDOMET [Concomitant]
     Dosage: 500 MG, 2X/DAY
     Route: 048

REACTIONS (4)
  - Drug interaction [Recovered/Resolved]
  - Immunosuppressant drug level increased [Recovered/Resolved]
  - Haematuria [Recovered/Resolved]
  - Tenderness [Not Recovered/Not Resolved]
